FAERS Safety Report 5065536-1 (Version None)
Quarter: 2006Q3

REPORT INFORMATION
  Report Type: 
  Country: None (occurrence: None)
  Receive Date: 20060731
  Receipt Date: 20060711
  Transmission Date: 20061208
  Serious: Yes (Other)
  Sender: FDA-Public Use
  Company Number: JP-JPN-A200602577

PATIENT
  Age: 22 Year
  Sex: Female
  Weight: 57 kg

DRUGS (11)
  1. PAXIL [Suspect]
     Indication: DEPRESSION
     Dosage: 20MG PER DAY
     Route: 048
     Dates: start: 20060609, end: 20060706
  2. DEPROMEL [Suspect]
     Indication: DEPRESSION
     Dosage: 50MG THREE TIMES PER DAY
     Route: 048
     Dates: start: 20060516
  3. UNKNOWN NAME [Concomitant]
     Dosage: 80MG PER DAY
     Route: 048
     Dates: start: 20060225, end: 20060324
  4. UNKNOWN NAME [Concomitant]
     Dosage: 4G PER DAY
     Route: 048
     Dates: start: 20060225, end: 20060305
  5. ONON [Concomitant]
     Indication: ASTHMA
     Dosage: 450MG PER DAY
     Route: 048
     Dates: start: 20060325, end: 20060706
  6. ARDEPHYLLIN [Concomitant]
     Indication: ASTHMA
     Dosage: 200MG PER DAY
     Route: 048
     Dates: start: 20060325, end: 20060406
  7. SEDIEL [Concomitant]
     Indication: DEPRESSION
     Route: 048
     Dates: start: 20060414
  8. UNKNOWN NAME [Concomitant]
     Indication: DEPRESSION
     Dosage: 3U PER DAY
     Route: 048
     Dates: start: 20060414, end: 20060515
  9. SEPAZON [Concomitant]
     Indication: DEPRESSION
     Route: 048
     Dates: start: 20060516
  10. STAMACLIT [Concomitant]
     Indication: DEPRESSION
     Dosage: 3U PER DAY
     Route: 048
     Dates: start: 20060512, end: 20060706
  11. FLUVOXAMINE MALEATE [Concomitant]
     Dates: start: 20060516

REACTIONS (3)
  - DEPRESSION [None]
  - GALACTORRHOEA [None]
  - INTENTIONAL SELF-INJURY [None]
